FAERS Safety Report 19185535 (Version 2)
Quarter: 2021Q2

REPORT INFORMATION
  Report Type: Spontaneous
  Country: GB (occurrence: GB)
  Receive Date: 20210427
  Receipt Date: 20210430
  Transmission Date: 20210717
  Serious: Yes (Life-Threatening, Other)
  Sender: FDA-Public Use
  Company Number: GB-ACCORD-223277

PATIENT
  Age: 32 Year
  Sex: Female
  Weight: 90 kg

DRUGS (1)
  1. SERTRALINE [Suspect]
     Active Substance: SERTRALINE HYDROCHLORIDE
     Indication: DEPRESSION
     Dosage: 60 MG
     Route: 048
     Dates: start: 20210201, end: 20210209

REACTIONS (4)
  - Depression [Recovered/Resolved]
  - Emotional distress [Recovered/Resolved]
  - Suicidal ideation [Recovered/Resolved]
  - Intentional self-injury [Recovered/Resolved]

NARRATIVE: CASE EVENT DATE: 20210203
